FAERS Safety Report 7086267-2 (Version None)
Quarter: 2010Q4

REPORT INFORMATION
  Report Type: 
  Country: None (occurrence: None)
  Receive Date: 20101105
  Receipt Date: 20101026
  Transmission Date: 20110411
  Serious: Yes (Other)
  Sender: FDA-Public Use
  Company Number: US-JNJCH-2010025020

PATIENT
  Age: 73 Year
  Sex: Male
  Weight: 99.8 kg

DRUGS (14)
  1. ASPIRIN [Suspect]
     Indication: PROPHYLAXIS
     Dosage: TEXT:UNKNOWN
     Route: 048
  2. PEPCID [Concomitant]
     Indication: GASTRIC DISORDER
     Dosage: TEXT:TWO TABLETS TWICE A DAY
     Route: 048
  3. LUTEIN [Concomitant]
     Indication: EYE DISORDER
     Dosage: TEXT:ONE DAILY
     Route: 065
  4. LOVAZA [Concomitant]
     Indication: VITAMIN SUPPLEMENTATION
     Dosage: TEXT:1200 MG TWO DAILY
     Route: 065
  5. COQ-10 ST [Concomitant]
     Indication: VITAMIN SUPPLEMENTATION
     Dosage: TEXT:100 MG ONE DAILY
     Route: 065
  6. CRESTOR [Concomitant]
     Indication: BLOOD CHOLESTEROL INCREASED
     Dosage: TEXT:10 MG ONE DAILY
     Route: 065
  7. AMLODIPINE [Concomitant]
     Indication: HYPERTENSION
     Dosage: TEXT:5 MG ONE DAILY
     Route: 065
  8. PRILOSEC [Concomitant]
     Indication: GASTRIC DISORDER
     Dosage: TEXT:ONE DAILY
     Route: 065
  9. METFORMIN HCL [Concomitant]
     Indication: DIABETES MELLITUS
     Dosage: TEXT:500 MG TWO DAILY
     Route: 065
  10. PLAVIX [Concomitant]
     Indication: CARDIAC DISORDER
     Dosage: TEXT:75 MG ONE DAILY
     Route: 065
  11. IRON [Concomitant]
     Indication: VITAMIN SUPPLEMENTATION
     Dosage: TEXT:50 MG ONE DAILY
     Route: 065
  12. HUMALOG [Concomitant]
     Indication: DIABETES MELLITUS
     Dosage: TEXT:5 UNITS AND 8 UNITS ONCE DAILY EACH
     Route: 065
  13. LANTUS [Concomitant]
     Indication: DIABETES MELLITUS
     Dosage: TEXT:25 UNITS DAILY
     Route: 065
  14. NIACIN [Concomitant]
     Indication: CARDIAC DISORDER
     Dosage: TEXT:500 MG TWO DAILY
     Route: 065

REACTIONS (1)
  - GASTRIC HAEMORRHAGE [None]
